FAERS Safety Report 5833771-8 (Version None)
Quarter: 2008Q3

REPORT INFORMATION
  Report Type: 
  Country: None (occurrence: None)
  Receive Date: 20080804
  Receipt Date: 20080804
  Transmission Date: 20090109
  Serious: Yes (Hospitalization)
  Sender: FDA-Public Use
  Company Number: None

PATIENT
  Sex: Female
  Weight: 139 kg

DRUGS (7)
  1. FLUOROURACIL [Suspect]
     Dosage: 1200 MG
     Dates: end: 20080201
  2. CYCLOPHOSPHAMIDE [Suspect]
     Dosage: 1200 MG
     Dates: end: 20080201
  3. ELLENCE [Suspect]
     Dosage: 240 MG
     Dates: end: 20080201
  4. ATIVAN [Concomitant]
  5. EFFEXOR [Concomitant]
  6. MOTRIN [Concomitant]
  7. ROBITUSSIN COUGH SYRUP [Concomitant]

REACTIONS (9)
  - ANXIETY [None]
  - COUGH [None]
  - DEPRESSION [None]
  - INSOMNIA [None]
  - MIGRAINE [None]
  - NAUSEA [None]
  - PYREXIA [None]
  - SUICIDAL IDEATION [None]
  - VOMITING [None]
